FAERS Safety Report 24433191 (Version 1)
Quarter: 2024Q4

REPORT INFORMATION
  Report Type: Spontaneous
  Country: US (occurrence: US)
  Receive Date: 20241014
  Receipt Date: 20241014
  Transmission Date: 20250115
  Serious: No
  Sender: GLAXOSMITHKLINE
  Company Number: US-GSK-US2024AMR122971

PATIENT
  Sex: Female
  Weight: 74.83 kg

DRUGS (1)
  1. ZEJULA [Suspect]
     Active Substance: NIRAPARIB
     Indication: Malignant peritoneal neoplasm
     Dosage: 200 MG, QD, 1 TAB
     Route: 048
     Dates: start: 20240909

REACTIONS (1)
  - Platelet count decreased [Unknown]
